FAERS Safety Report 4771462-5 (Version None)
Quarter: 2005Q3

REPORT INFORMATION
  Report Type: 
  Country: None (occurrence: None)
  Receive Date: 20050915
  Receipt Date: 20050830
  Transmission Date: 20060218
  Serious: Yes (Death)
  Sender: FDA-Public Use
  Company Number: US_0508121361

PATIENT

DRUGS (1)
  1. ZYPREXA [Suspect]
     Indication: TRISOMY 21
     Dates: start: 20001016

REACTIONS (1)
  - DEATH [None]
